FAERS Safety Report 21243548 (Version 1)
Quarter: 2022Q3

REPORT INFORMATION
  Report Type: Spontaneous
  Country: US (occurrence: None)
  Receive Date: 20220822
  Receipt Date: 20220822
  Transmission Date: 20221027
  Serious: Yes (Hospitalization, Disabling)
  Sender: FDA-Public Use
  Company Number: None

PATIENT
  Age: 54 Year
  Sex: Female
  Weight: 76.5 kg

DRUGS (9)
  1. ELIQUIS [Suspect]
     Active Substance: APIXABAN
     Indication: Deep vein thrombosis
     Dosage: FREQUENCY : TWICE A DAY;?
     Route: 048
     Dates: start: 20220811, end: 20220815
  2. ELIQUIS [Suspect]
     Active Substance: APIXABAN
     Indication: Pulmonary embolism
  3. LEVOCARNITINE [Concomitant]
     Active Substance: LEVOCARNITINE
  4. COLASE [Concomitant]
  5. HERBALS\TURMERIC [Concomitant]
     Active Substance: HERBALS\TURMERIC
  6. XYZAL [Concomitant]
     Active Substance: LEVOCETIRIZINE DIHYDROCHLORIDE
  7. BENADRYL [Concomitant]
     Active Substance: DIPHENHYDRAMINE HYDROCHLORIDE
  8. LOVENOX [Suspect]
     Active Substance: ENOXAPARIN SODIUM
  9. XARELTO [Suspect]
     Active Substance: RIVAROXABAN

REACTIONS (8)
  - Rash [None]
  - Dermatitis contact [None]
  - Decreased appetite [None]
  - Cardiac flutter [None]
  - Nervousness [None]
  - Muscle twitching [None]
  - Inflammation [None]
  - Drug hypersensitivity [None]

NARRATIVE: CASE EVENT DATE: 20220812
